FAERS Safety Report 5002233-2 (Version None)
Quarter: 2006Q2

REPORT INFORMATION
  Report Type: 
  Country: None (occurrence: None)
  Receive Date: 20060511
  Receipt Date: 20060511
  Transmission Date: 20061013
  Serious: Yes (Life-Threatening, Hospitalization)
  Sender: FDA-Public Use
  Company Number: None

PATIENT
  Age: 43 Year
  Sex: Male
  Weight: 105 kg

DRUGS (1)
  1. CLOZAPINE [Suspect]
     Indication: SCHIZOAFFECTIVE DISORDER
     Dosage: 125 MG Q AM ; 500 MG Q PM
     Dates: start: 20050525, end: 20060412

REACTIONS (4)
  - DELIRIUM [None]
  - HYPOXIA [None]
  - MENTAL STATUS CHANGES [None]
  - SOMNOLENCE [None]
